FAERS Safety Report 23278499 (Version 3)
Quarter: 2024Q1

REPORT INFORMATION
  Report Type: Spontaneous
  Country: US (occurrence: US)
  Receive Date: 20231208
  Receipt Date: 20240216
  Transmission Date: 20240410
  Serious: No
  Sender: FDA-Public Use
  Company Number: US-PHARMING-PHAUS2023000890

PATIENT

DRUGS (4)
  1. RUCONEST [Suspect]
     Active Substance: CONESTAT ALFA
     Indication: Hereditary angioedema
     Dosage: 2100 IU - 4200 IU TWICE A WEEK AND AS NEEDED
     Route: 058
     Dates: start: 20180314
  2. RUCONEST [Suspect]
     Active Substance: CONESTAT ALFA
     Dosage: 4200 IU,  TWICE A WEEK AND AS NEEDED
     Route: 058
     Dates: start: 20180314
  3. RUCONEST [Suspect]
     Active Substance: CONESTAT ALFA
     Dosage: 2100 IU- 4200 IU  TWICE A WEEK AND AS NEEDED
     Route: 058
     Dates: start: 201803
  4. LIDOCAINE\PRILOCAINE [Concomitant]
     Active Substance: LIDOCAINE\PRILOCAINE
     Indication: Product used for unknown indication

REACTIONS (3)
  - Incorrect route of product administration [Unknown]
  - Intentional product use issue [Unknown]
  - Sensitivity to weather change [Unknown]
